FAERS Safety Report 6883532-6 (Version None)
Quarter: 2010Q3

REPORT INFORMATION
  Report Type: 
  Country: None (occurrence: None)
  Receive Date: 20100729
  Receipt Date: 20100728
  Transmission Date: 20110219
  Serious: Yes (Other)
  Sender: FDA-Public Use
  Company Number: A0872675A

PATIENT
  Age: 53 Year
  Sex: Female

DRUGS (4)
  1. ALLI [Suspect]
     Indication: WEIGHT LOSS DIET
     Route: 048
     Dates: end: 20100726
  2. ATENOLOL [Concomitant]
     Indication: HEART RATE INCREASED
  3. PANTOPRAZOLE [Concomitant]
  4. CRESTOR [Concomitant]

REACTIONS (4)
  - DRUG INEFFECTIVE [None]
  - HEPATIC STEATOSIS [None]
  - PAIN [None]
  - WEIGHT INCREASED [None]
